FAERS Safety Report 16052497 (Version 1)
Quarter: 2019Q1

REPORT INFORMATION
  Report Type: Spontaneous
  Country: JP (occurrence: JP)
  Receive Date: 20190308
  Receipt Date: 20190308
  Transmission Date: 20190418
  Serious: Yes (Hospitalization, Other)
  Sender: FDA-Public Use
  Company Number: JP-SA-2019SA060699

PATIENT
  Age: 62 Year
  Sex: Male

DRUGS (12)
  1. INSULIN GLARGINE [Suspect]
     Active Substance: INSULIN GLARGINE
     Indication: TYPE 1 DIABETES MELLITUS
     Dosage: STARTED
     Dates: start: 200401
  2. INSULIN GLARGINE [Suspect]
     Active Substance: INSULIN GLARGINE
     Dosage: RAPIDLY DECREASED INSULIN DOSES
  3. INSULIN LISPRO [Suspect]
     Active Substance: INSULIN LISPRO
     Dosage: GRADUALLY INCREASED
  4. INSULIN LISPRO [Suspect]
     Active Substance: INSULIN LISPRO
     Dosage: 94 U, QD (INCREASED THE TOTAL DAILY DOSE OF INSULIN)
  5. INSULIN LISPRO [Suspect]
     Active Substance: INSULIN LISPRO
     Dosage: 18 U, QD
  6. INSULIN LISPRO [Suspect]
     Active Substance: INSULIN LISPRO
     Dosage: RAPIDLY DECREASED INSULIN DOSES
  7. INSULIN GLARGINE [Suspect]
     Active Substance: INSULIN GLARGINE
     Dosage: 6 U, QD
  8. INSULIN GLARGINE [Suspect]
     Active Substance: INSULIN GLARGINE
     Dosage: 22 U, QD (INCREASED THE TOTAL DAILY DOSE)
  9. INSULIN LISPRO [Suspect]
     Active Substance: INSULIN LISPRO
     Indication: TYPE 1 DIABETES MELLITUS
     Dosage: STARTED
     Dates: start: 200401
  10. INSULIN LISPRO [Suspect]
     Active Substance: INSULIN LISPRO
     Dosage: (TOTAL OF 66 UNITS OF INSULIN)
  11. INSULIN GLARGINE [Suspect]
     Active Substance: INSULIN GLARGINE
     Dosage: GRADUALLY INCREASED
  12. INSULIN GLARGINE [Suspect]
     Active Substance: INSULIN GLARGINE
     Dosage: (TOTAL OF 66 UNITS OF INSULIN)

REACTIONS (6)
  - Diabetes mellitus inadequate control [Recovered/Resolved]
  - Glycosylated haemoglobin increased [Recovered/Resolved]
  - Hypoglycaemia [Recovered/Resolved]
  - Insulin resistance [Recovered/Resolved]
  - Cutaneous amyloidosis [Recovering/Resolving]
  - Blood glucose increased [Recovered/Resolved]
